FAERS Safety Report 14402418 (Version 1)
Quarter: 2018Q1

REPORT INFORMATION
  Report Type: Report from Study
  Country: UA (occurrence: UA)
  Receive Date: 20180117
  Receipt Date: 20180117
  Transmission Date: 20180509
  Serious: Yes (Death)
  Sender: FDA-Public Use
  Company Number: UA-EMD SERONO-E2B_90010963

PATIENT
  Age: 70 Year
  Sex: Female
  Weight: 65 kg

DRUGS (9)
  1. KLEXANE [Concomitant]
     Active Substance: ENOXAPARIN
     Dosage: 0.4 ML, 1X/DAY
     Dates: start: 20171216
  2. SULODEXIDE [Concomitant]
     Active Substance: SULODEXIDE
     Indication: DEEP VEIN THROMBOSIS
     Dosage: 250 MG, 1X/DAY
     Route: 048
     Dates: start: 20171229
  3. MALTOFER [Concomitant]
     Active Substance: IRON POLYMALTOSE
     Indication: ANAEMIA
     Dosage: 1 CAPS, 2X/DAY
     Route: 048
     Dates: start: 20171027, end: 20171215
  4. KLEXANE [Concomitant]
     Active Substance: ENOXAPARIN
     Indication: DEEP VEIN THROMBOSIS
     Dosage: 0.8 ML, 2X/DAY
     Route: 058
     Dates: start: 20171129, end: 20171215
  5. CARBOPLATIN. [Concomitant]
     Active Substance: CARBOPLATIN
     Indication: OVARIAN CANCER
     Dosage: 434 MG, EVERY 3 WEEKS
     Route: 042
     Dates: start: 20170925, end: 20171114
  6. VALSARTAN. [Concomitant]
     Active Substance: VALSARTAN
     Indication: HYPERTENSION
     Dosage: 0.5 TAB, AS NEEDED
     Route: 048
     Dates: start: 2014, end: 20171215
  7. PACLITAXEL. [Concomitant]
     Active Substance: PACLITAXEL
     Indication: OVARIAN CANCER
     Dosage: 313 MG, EVERY 3 WEEKS
     Route: 042
     Dates: start: 20170925, end: 20171114
  8. CANEPHRON [Concomitant]
     Active Substance: HERBALS
     Indication: URINARY TRACT INFECTION
     Dosage: 2 TABS, 3X/DAY
     Route: 048
     Dates: start: 20171018
  9. AVELUMAB [Suspect]
     Active Substance: AVELUMAB
     Indication: OVARIAN CANCER
     Dosage: 700 MG, EVERY 3 WEEKS
     Route: 042
     Dates: start: 20170925, end: 20171114

REACTIONS (1)
  - Death [Fatal]

NARRATIVE: CASE EVENT DATE: 20180103
